FAERS Safety Report 9970969 (Version 1)
Quarter: 2014Q1

REPORT INFORMATION
  Report Type: Report from Study
  Country: US (occurrence: US)
  Receive Date: 20140306
  Receipt Date: 20140306
  Transmission Date: 20141002
  Serious: No
  Sender: FDA-Public Use
  Company Number: US-ABBVIE-13P-163-1153150-00

PATIENT
  Age: 64 Year
  Sex: Female

DRUGS (4)
  1. HUMIRA [Suspect]
     Indication: PSORIATIC ARTHROPATHY
     Dates: start: 20130928
  2. PROTONIX [Concomitant]
     Indication: GASTRIC DISORDER
  3. ADVAIR [Concomitant]
     Indication: ASTHMA
     Dosage: INHALER WITH PUFFS
  4. BISOPROLOL [Concomitant]
     Indication: HYPERTENSION

REACTIONS (2)
  - Injection site haemorrhage [Recovered/Resolved]
  - Injection site pain [Recovered/Resolved]
